FAERS Safety Report 7306680-5 (Version None)
Quarter: 2011Q1

REPORT INFORMATION
  Report Type: 
  Country: None (occurrence: None)
  Receive Date: 20110222
  Receipt Date: 20110214
  Transmission Date: 20110831
  Serious: Yes (Other)
  Sender: FDA-Public Use
  Company Number: GB-AMGEN-BRASP2011007846

PATIENT
  Age: 62 Year
  Sex: Female

DRUGS (1)
  1. GRANULOKINE [Suspect]
     Indication: NEUTROPENIA
     Dosage: 300 A?G, QD
     Route: 058
     Dates: start: 20110117, end: 20110121

REACTIONS (8)
  - PLATELET COUNT DECREASED [None]
  - HAEMATOCRIT DECREASED [None]
  - INCORRECT ROUTE OF DRUG ADMINISTRATION [None]
  - NEUTROPHIL COUNT DECREASED [None]
  - WHITE BLOOD CELL COUNT DECREASED [None]
  - RED BLOOD CELL COUNT DECREASED [None]
  - HAEMOGLOBIN DECREASED [None]
  - RED CELL DISTRIBUTION WIDTH INCREASED [None]
